FAERS Safety Report 5527900-3 (Version None)
Quarter: 2007Q4

REPORT INFORMATION
  Report Type: 
  Country: None (occurrence: None)
  Receive Date: 20071126
  Receipt Date: 20071126
  Transmission Date: 20080405
  Serious: Yes (Life-Threatening, Other)
  Sender: FDA-Public Use
  Company Number: None

PATIENT
  Age: 75 Year
  Sex: Male
  Weight: 88.4514 kg

DRUGS (1)
  1. TEKTURNA [Suspect]
     Indication: HYPERTENSION
     Dosage: 1 TABLET  ONCE DAILY  PO
     Route: 048
     Dates: start: 20071122, end: 20071123

REACTIONS (2)
  - CARDIAC DISORDER [None]
  - HYPERTENSION [None]
